FAERS Safety Report 9494418 (Version 2)
Quarter: 2013Q3

REPORT INFORMATION
  Report Type: Spontaneous
  Country: IN (occurrence: IN)
  Receive Date: 20130903
  Receipt Date: 20130909
  Transmission Date: 20140515
  Serious: Yes (Death, Other)
  Sender: FDA-Public Use
  Company Number: IN-MERCK-1309IND000361

PATIENT
  Age: 76 Year
  Sex: 0

DRUGS (1)
  1. JANUMET [Suspect]
     Dosage: 1 DF QD, STRENGHT 50/500 UNK
     Route: 048

REACTIONS (2)
  - Myocardial infarction [Fatal]
  - Pain in extremity [Unknown]
